FAERS Safety Report 9069664 (Version 1)
Quarter: 2013Q1

REPORT INFORMATION
  Report Type: Report from Study
  Country: GB (occurrence: GB)
  Receive Date: 20130215
  Receipt Date: 20130215
  Transmission Date: 20140127
  Serious: Yes (Other)
  Sender: FDA-Public Use
  Company Number: GB-B.I. PHARMACEUTICALS,INC./RIDGEFIELD-2013-BI-04057GD

PATIENT
  Sex: 0

DRUGS (1)
  1. PARACEFAN [Suspect]
     Indication: TOURETTE^S DISORDER

REACTIONS (1)
  - Suicidal ideation [Unknown]
